FAERS Safety Report 6157454-2 (Version None)
Quarter: 2009Q2

REPORT INFORMATION
  Report Type: 
  Country: None (occurrence: None)
  Receive Date: 20090416
  Receipt Date: 20090406
  Transmission Date: 20091009
  Serious: Yes (Hospitalization)
  Sender: FDA-Public Use
  Company Number: US-PFIZER INC-2009176523

PATIENT
  Sex: Male
  Weight: 124.72 kg

DRUGS (4)
  1. GEODON [Suspect]
     Indication: SCHIZOPHRENIA, PARANOID TYPE
     Dosage: 80 MG, 2X/DAY
     Route: 048
     Dates: start: 20081216, end: 20081218
  2. TRILEPTAL [Concomitant]
     Dosage: 300 MG, UNK
     Dates: start: 20031101
  3. RISPERDAL [Concomitant]
     Dosage: UNK
  4. TRICOR [Concomitant]

REACTIONS (4)
  - DISCOMFORT [None]
  - EXTRAPYRAMIDAL DISORDER [None]
  - JOINT STIFFNESS [None]
  - MUSCULOSKELETAL STIFFNESS [None]
